FAERS Safety Report 5450361-X (Version None)
Quarter: 2007Q3

REPORT INFORMATION
  Report Type: 
  Country: None (occurrence: None)
  Receive Date: 20070912
  Receipt Date: 20070831
  Transmission Date: 20080115
  Serious: Yes (Other)
  Sender: FDA-Public Use
  Company Number: US-PFIZER INC-2007073629

PATIENT
  Sex: Female
  Weight: 63.5 kg

DRUGS (4)
  1. NEURONTIN [Suspect]
     Indication: NEURALGIA
  2. NEURONTIN [Suspect]
     Indication: FIBROMYALGIA
  3. DIAZEPAM [Concomitant]
  4. PHRENILIN [Concomitant]

REACTIONS (1)
  - PAIN [None]
